FAERS Safety Report 21534529 (Version 1)
Quarter: 2022Q4

REPORT INFORMATION
  Report Type: Spontaneous
  Country: TR (occurrence: TR)
  Receive Date: 20221101
  Receipt Date: 20221101
  Transmission Date: 20230113
  Serious: Yes (Life-Threatening, Other)
  Sender: FDA-Public Use
  Company Number: TR-PFIZER INC-PV202200086308

PATIENT
  Age: 7 Year
  Sex: Female

DRUGS (3)
  1. VANCOMYCIN [Suspect]
     Active Substance: VANCOMYCIN
     Dosage: 60 MG/KG, 1X/DAY
  2. CEFOTAXIME [Suspect]
     Active Substance: CEFOTAXIME SODIUM
     Dosage: 225 MG/KG, 1X/DAY
  3. ACYCLOVIR [Suspect]
     Active Substance: ACYCLOVIR
     Dosage: 45 MG/KG, 1X/DAY

REACTIONS (2)
  - Encephalopathy [Unknown]
  - Vasogenic cerebral oedema [Unknown]
